FAERS Safety Report 5728404-5 (Version None)
Quarter: 2008Q2

REPORT INFORMATION
  Report Type: 
  Country: None (occurrence: None)
  Receive Date: 20080506
  Receipt Date: 20080428
  Transmission Date: 20081010
  Serious: Yes (Other)
  Sender: FDA-Public Use
  Company Number: MY-WYE-H03818208

PATIENT
  Sex: Male
  Weight: 80.6 kg

DRUGS (1)
  1. TEMSIROLIMUS [Suspect]
     Indication: METASTATIC RENAL CELL CARCINOMA
     Route: 042
     Dates: start: 20080211, end: 20080407

REACTIONS (2)
  - PNEUMONITIS [None]
  - PULMONARY FIBROSIS [None]
